FAERS Safety Report 4818577-0 (Version None)
Quarter: 2005Q4

REPORT INFORMATION
  Report Type: 
  Country: None (occurrence: None)
  Receive Date: 20051101
  Receipt Date: 20051017
  Transmission Date: 20060501
  Serious: Yes (Hospitalization)
  Sender: FDA-Public Use
  Company Number: 2005-0008827

PATIENT
  Age: 49 Year
  Sex: Female

DRUGS (2)
  1. TRUVADA [Suspect]
     Indication: HIV INFECTION
     Dates: start: 20040701, end: 20050801
  2. KALETRA [Suspect]
     Indication: HIV INFECTION
     Dates: start: 20040701, end: 20050801

REACTIONS (2)
  - CLOSTRIDIAL INFECTION [None]
  - PULMONARY TOXICITY [None]
